FAERS Safety Report 6168342-X (Version None)
Quarter: 2009Q2

REPORT INFORMATION
  Report Type: 
  Country: None (occurrence: None)
  Receive Date: 20090427
  Receipt Date: 20090427
  Transmission Date: 20091009
  Serious: Yes (Death, Hospitalization)
  Sender: FDA-Public Use
  Company Number: JP-B.I. PHARMACEUTICALS,INC./RIDGEFIELD-2009-BP-00805NB

PATIENT
  Sex: Male
  Weight: 98 kg

DRUGS (9)
  1. MICARDIS [Suspect]
     Indication: HYPERTENSION
     Dosage: 20MG
     Route: 048
     Dates: start: 20060523, end: 20080815
  2. SOLOMUCO [Concomitant]
     Indication: PRODUCTIVE COUGH
     Dosage: 45MG
     Route: 048
     Dates: start: 20021101
  3. ACTOS [Concomitant]
     Indication: DIABETES MELLITUS
     Dosage: 15MG
     Route: 048
     Dates: start: 20060602
  4. LOCHOL [Concomitant]
     Indication: DYSLIPIDAEMIA
     Dosage: 20MG
     Route: 048
     Dates: start: 20060501
  5. THEOLONG [Concomitant]
     Indication: ASTHMA
     Dosage: 400MG
     Route: 048
     Dates: start: 19950114
  6. TAKEPRON [Concomitant]
     Indication: GASTRIC ULCER
     Dosage: 15MG
     Route: 048
     Dates: start: 20071101
  7. RIMATIL [Concomitant]
     Indication: RHEUMATOID ARTHRITIS
     Dosage: 200MG
     Route: 048
     Dates: start: 20071111
  8. LORCAM [Concomitant]
     Indication: ANALGESIA
     Dosage: 12MG
     Route: 048
     Dates: start: 20071119
  9. PREDONINE [Concomitant]
     Indication: RHEUMATOID ARTHRITIS
     Dosage: 15MG
     Route: 048
     Dates: start: 20021221

REACTIONS (1)
  - ASTHMA [None]
